FAERS Safety Report 15589910 (Version 1)
Quarter: 2018Q4

REPORT INFORMATION
  Report Type: Spontaneous
  Country: GB (occurrence: GB)
  Receive Date: 20181106
  Receipt Date: 20181106
  Transmission Date: 20190205
  Serious: Yes (Life-Threatening, Hospitalization)
  Sender: FDA-Public Use
  Company Number: GB-MYLANLABS-2018M1082839

PATIENT
  Age: 4 Month
  Sex: Female

DRUGS (1)
  1. CLINDAMYCIN. [Suspect]
     Active Substance: CLINDAMYCIN
     Indication: SWELLING FACE
     Route: 042

REACTIONS (5)
  - Septic shock [Recovering/Resolving]
  - Condition aggravated [Recovering/Resolving]
  - Septic embolus [Recovering/Resolving]
  - Staphylococcal sepsis [Recovering/Resolving]
  - Abscess [Recovering/Resolving]
